FAERS Safety Report 10143856 (Version 1)
Quarter: 2014Q2

REPORT INFORMATION
  Report Type: Report from Study
  Country: BR (occurrence: BR)
  Receive Date: 20140430
  Receipt Date: 20140430
  Transmission Date: 20141212
  Serious: Yes (Death, Hospitalization)
  Sender: FDA-Public Use
  Company Number: BR-BAYER-2014-059451

PATIENT
  Age: 47 Year
  Sex: Male

DRUGS (3)
  1. NEXAVAR [Suspect]
     Indication: HEPATIC CANCER
     Dosage: 2 DF, BID, 2 IN THE MORNING/2 AT NIGHT
     Route: 048
     Dates: start: 20140305
  2. ALDACTONE [SPIRONOLACTONE] [Concomitant]
     Indication: ASCITES
     Dosage: 100 MG, QD
     Route: 048
     Dates: start: 201312
  3. LASIX [Concomitant]
     Indication: ASCITES
     Dosage: 80 MG, QD
     Route: 048
     Dates: start: 201403

REACTIONS (6)
  - Haemorrhage [Recovered/Resolved]
  - Hepatic cancer [Fatal]
  - Eating disorder [Not Recovered/Not Resolved]
  - Hypotension [Not Recovered/Not Resolved]
  - Dyspnoea [Not Recovered/Not Resolved]
  - Dysuria [Not Recovered/Not Resolved]
